FAERS Safety Report 25595807 (Version 1)
Quarter: 2025Q3

REPORT INFORMATION
  Report Type: Spontaneous
  Country: US (occurrence: None)
  Receive Date: 20250722
  Receipt Date: 20250722
  Transmission Date: 20251021
  Serious: Yes (Other)
  Sender: FDA-CTU
  Company Number: None

PATIENT
  Sex: Male

DRUGS (10)
  1. BOTOX [Suspect]
     Active Substance: ONABOTULINUMTOXINA
     Dates: start: 20221130
  2. AZITHROMYCIN [Concomitant]
     Active Substance: AZITHROMYCIN
  3. CLONAZEPAM TAB 0.5MG [Concomitant]
  4. HYDROCORTISO CRE 2.5% [Concomitant]
  5. HYDROCORTISO CRE 2.5% [Concomitant]
  6. NURTEC TAB 75MG ODT [Concomitant]
  7. PROMETHAZINE SUP 25MG [Concomitant]
  8. SUCRALFATE TAB 1GM [Concomitant]
  9. TESTOST CYP INJ 200MG/ML [Concomitant]
  10. UBRELVY TAB 100MG [Concomitant]

REACTIONS (1)
  - Prostate cancer [None]
